FAERS Safety Report 7733755-9 (Version None)
Quarter: 2011Q3

REPORT INFORMATION
  Report Type: 
  Country: None (occurrence: None)
  Receive Date: 20110907
  Receipt Date: 20110827
  Transmission Date: 20111222
  Serious: Yes (Other)
  Sender: FDA-Public Use
  Company Number: PHHY2011AU78629

PATIENT
  Age: 36 Year
  Sex: Male

DRUGS (4)
  1. PREDNISOLONE [Concomitant]
     Dosage: 5 MG, DAILY
  2. CYCLOSPORINE [Suspect]
     Indication: RENAL TRANSPLANT
     Dosage: 60 MG, BID
  3. DOXYCYCLINE [Concomitant]
     Indication: ROSACEA
     Dosage: 50 MG, DAILY
  4. AZATHIOPRINE [Concomitant]
     Indication: RENAL TRANSPLANT
     Dosage: 75 MG, DAILY

REACTIONS (4)
  - PAPULE [None]
  - SKIN LESION [None]
  - SEBACEOUS HYPERPLASIA [None]
  - CHEILITIS [None]
